FAERS Safety Report 6974744-1 (Version None)
Quarter: 2010Q3

REPORT INFORMATION
  Report Type: 
  Country: None (occurrence: None)
  Receive Date: 20100909
  Receipt Date: 20081203
  Transmission Date: 20110219
  Serious: No
  Sender: FDA-Public Use
  Company Number: US-WYE-H07096808

PATIENT
  Sex: Male
  Weight: 95.34 kg

DRUGS (3)
  1. PRISTIQ [Suspect]
     Indication: DEPRESSION
     Route: 048
     Dates: start: 20081128, end: 20081201
  2. PRISTIQ [Suspect]
     Dosage: ^CUT TABLET IN HALF^
     Route: 048
     Dates: start: 20081202
  3. CELEXA [Concomitant]

REACTIONS (2)
  - HEADACHE [None]
  - VISUAL IMPAIRMENT [None]
